FAERS Safety Report 5669965-4 (Version None)
Quarter: 2008Q1

REPORT INFORMATION
  Report Type: 
  Country: None (occurrence: None)
  Receive Date: 20080312
  Receipt Date: 20080303
  Transmission Date: 20080703
  Serious: Yes (Hospitalization, Disabling, Other)
  Sender: FDA-Public Use
  Company Number: 18629

PATIENT
  Age: 51 Year
  Sex: Male

DRUGS (2)
  1. ACYCLOVIR [Suspect]
     Indication: HERPES ZOSTER OPHTHALMIC
  2. INSULIN [Concomitant]

REACTIONS (7)
  - CELLULITIS [None]
  - CHEMICAL INJURY [None]
  - COMPLEX REGIONAL PAIN SYNDROME [None]
  - FIBROSIS [None]
  - INJECTION SITE EXTRAVASATION [None]
  - LYMPHATIC OBSTRUCTION [None]
  - MUSCULOSKELETAL STIFFNESS [None]
